FAERS Safety Report 4975112-4 (Version None)
Quarter: 2006Q2

REPORT INFORMATION
  Report Type: 
  Country: None (occurrence: None)
  Receive Date: 20060414
  Receipt Date: 20060414
  Transmission Date: 20061013
  Serious: Yes (Hospitalization)
  Sender: FDA-Public Use
  Company Number: None

PATIENT
  Age: 43 Year
  Sex: Male
  Weight: 87.1 kg

DRUGS (8)
  1. ATOMOXETINE [Suspect]
     Indication: ATTENTION DEFICIT/HYPERACTIVITY DISORDER
     Dosage: 40MG  PO  QD
     Route: 048
     Dates: start: 20050201, end: 20060201
  2. LANSOPRAZOLE [Concomitant]
  3. SYNTHROID [Concomitant]
  4. SIMVASTATIN [Concomitant]
  5. ETODOLAC [Concomitant]
  6. GLYBURIDE [Concomitant]
  7. CLONAZEPAM [Concomitant]
  8. QUETIAPINE FUMARATE [Concomitant]

REACTIONS (2)
  - BLOOD PRESSURE INCREASED [None]
  - TACHYCARDIA [None]
